FAERS Safety Report 8943427 (Version 1)
Quarter: 2012Q4

REPORT INFORMATION
  Report Type: 
  Country: US (occurrence: US)
  Receive Date: 20121204
  Receipt Date: 20121204
  Transmission Date: 20130627
  Serious: Yes (Hospitalization, Congenital Anomaly, Other)
  Sender: FDA-Public Use
  Company Number: US-PFIZER INC-2012300628

PATIENT
  Sex: Male

DRUGS (3)
  1. ZOLOFT [Suspect]
     Dosage: UNK
     Route: 064
  2. PRENATAL VITAMINS [Concomitant]
     Dosage: UNK
     Route: 064
  3. PHENERGAN [Concomitant]
     Dosage: UNK
     Route: 064

REACTIONS (5)
  - Maternal exposure timing unspecified [Unknown]
  - Pulmonary valve stenosis [Unknown]
  - Neonatal respiratory distress syndrome [Recovered/Resolved]
  - Sepsis neonatal [Recovered/Resolved]
  - Premature baby [Unknown]
